FAERS Safety Report 21760336 (Version 1)
Quarter: 2022Q4

REPORT INFORMATION
  Report Type: Spontaneous
  Country: US (occurrence: US)
  Receive Date: 20221221
  Receipt Date: 20221221
  Transmission Date: 20230113
  Serious: No
  Sender: FDA-Public Use
  Company Number: US-Accord-287315

PATIENT
  Sex: Male

DRUGS (1)
  1. LEUPROLIDE [Suspect]
     Active Substance: LEUPROLIDE
     Indication: Prostate cancer
     Dosage: EVERY 6 MONTHS
     Dates: start: 20220829

REACTIONS (4)
  - Hypersensitivity [Not Recovered/Not Resolved]
  - Thermal burn [Not Recovered/Not Resolved]
  - Skin exfoliation [Not Recovered/Not Resolved]
  - Asthenia [Not Recovered/Not Resolved]
